FAERS Safety Report 10177074 (Version 2)
Quarter: 2014Q2

REPORT INFORMATION
  Report Type: Spontaneous
  Country: JP (occurrence: None)
  Receive Date: 20140514
  Receipt Date: 20140604
  Transmission Date: 20141212
  Serious: Yes (Death, Other)
  Sender: FDA-Public Use
  Company Number: 2014-JP-005757

PATIENT
  Age: 33 Year
  Sex: Male

DRUGS (7)
  1. ERWINASE (ASPARAGINASE ERWINIA CHRYSANTHEMI) INJECTION [Suspect]
     Indication: ACUTE LEUKAEMIA
     Dosage: DAY 9, 11, 13, 16, 18 AND 20, KU/M2, INTRAVENOUS
     Route: 042
  2. CYCLOPHOSPHAMIDE (CYCLOPHOSPHAMIDE) [Concomitant]
  3. VINCRISTINE (VINCRISTINE SULFATE) [Concomitant]
  4. DOXORUBICIN (DOXORUBICIN HYDROCHLORIDE) [Concomitant]
  5. PREDNISOLONE (PREDNISOLONE ACETATE) [Concomitant]
  6. POLYMYSIN B (POLYMYXIN B SULFATE) [Concomitant]
  7. NYSTATIN (NYSTATIN, ZINC OXIDE) [Concomitant]

REACTIONS (16)
  - Bacillus infection [None]
  - Febrile neutropenia [None]
  - Hepatic function abnormal [None]
  - Abdominal pain [None]
  - White blood cell count decreased [None]
  - Platelet count decreased [None]
  - Aspartate aminotransferase increased [None]
  - Alanine aminotransferase increased [None]
  - Blood alkaline phosphatase increased [None]
  - Loss of consciousness [None]
  - Sepsis [None]
  - Cardio-respiratory arrest [None]
  - Brain stem haemorrhage [None]
  - Brain stem infarction [None]
  - Central nervous system necrosis [None]
  - Haemoglobin decreased [None]
